FAERS Safety Report 8072959-5 (Version None)
Quarter: 2012Q1

REPORT INFORMATION
  Report Type: 
  Country: None (occurrence: None)
  Receive Date: 20120126
  Receipt Date: 20120123
  Transmission Date: 20120608
  Serious: Yes (Death, Hospitalization)
  Sender: FDA-Public Use
  Company Number: FR-B.I. PHARMACEUTICALS,INC./RIDGEFIELD-2012-FF-00097FF

PATIENT
  Sex: Female

DRUGS (5)
  1. PRADAXA [Suspect]
     Dosage: 150 MG
     Route: 048
     Dates: start: 20111118, end: 20111128
  2. DUPHALAC [Concomitant]
  3. TENORMIN [Concomitant]
  4. ATORVASTATIN [Concomitant]
  5. LASIX [Concomitant]

REACTIONS (5)
  - EPISTAXIS [None]
  - HAEMORRHAGE SUBCUTANEOUS [None]
  - MELAENA [None]
  - PROTHROMBIN TIME SHORTENED [None]
  - ANAEMIA [None]
